FAERS Safety Report 23845927 (Version 1)
Quarter: 2024Q2

REPORT INFORMATION
  Report Type: Spontaneous
  Country: US (occurrence: US)
  Receive Date: 20240512
  Receipt Date: 20240512
  Transmission Date: 20240716
  Serious: No
  Sender: FDA-Public Use
  Company Number: US-CIPLA LTD.-2024US00908

PATIENT

DRUGS (3)
  1. ALBUTEROL [Suspect]
     Active Substance: ALBUTEROL
     Indication: Bronchospasm
     Dosage: 2 PUFFS (180 MCG) AS NEEDED (PRN) (FOR LAST 2 YEARS)
  2. ALBUTEROL [Suspect]
     Active Substance: ALBUTEROL
     Dosage: 2 PUFFS (180 MCG) AS NEEDED (PRN) (CLOSE TO 2 MONTHS AGO)
     Dates: start: 2023
  3. ALBUTEROL SULFATE [Concomitant]
     Active Substance: ALBUTEROL SULFATE
     Indication: Bronchospasm
     Dosage: 2 PUFFS (180 MCG) AS NEEDED (PRN) (MFG: HIKMA)
     Route: 065

REACTIONS (4)
  - Cough [Not Recovered/Not Resolved]
  - Illness [Not Recovered/Not Resolved]
  - Off label use [Unknown]
  - Device delivery system issue [Unknown]

NARRATIVE: CASE EVENT DATE: 20240101
